FAERS Safety Report 5771877-2 (Version None)
Quarter: 2008Q2

REPORT INFORMATION
  Report Type: 
  Country: None (occurrence: None)
  Receive Date: 20080613
  Receipt Date: 20080602
  Transmission Date: 20081010
  Serious: Yes (Hospitalization)
  Sender: FDA-Public Use
  Company Number: B0523743A

PATIENT
  Age: 69 Year
  Sex: Female

DRUGS (9)
  1. AUGMENTIN '125' [Suspect]
     Indication: DRUG USE FOR UNKNOWN INDICATION
     Dosage: 1G THREE TIMES PER DAY
     Route: 065
     Dates: start: 20080414, end: 20080424
  2. TIAPRIDAL [Suspect]
     Indication: DRUG USE FOR UNKNOWN INDICATION
     Dosage: 50MG PER DAY
     Route: 048
     Dates: start: 20080415, end: 20080419
  3. EXELON [Concomitant]
     Indication: DRUG USE FOR UNKNOWN INDICATION
     Route: 065
  4. MEMANTINE HCL [Concomitant]
     Indication: DRUG USE FOR UNKNOWN INDICATION
     Route: 065
  5. FLUOXETINE HCL [Concomitant]
     Indication: DRUG USE FOR UNKNOWN INDICATION
     Route: 065
  6. LEXOMIL [Concomitant]
     Indication: DRUG USE FOR UNKNOWN INDICATION
     Route: 065
  7. ORELOX [Concomitant]
     Route: 065
     Dates: start: 20080401
  8. PULMICORT [Concomitant]
     Route: 065
     Dates: start: 20080401
  9. VENTOLIN [Concomitant]
     Route: 065
     Dates: start: 20080401

REACTIONS (6)
  - EOSINOPHILIA [None]
  - HYPOXIA [None]
  - ILL-DEFINED DISORDER [None]
  - INFECTION PARASITIC [None]
  - LUNG DISORDER [None]
  - RALES [None]
